FAERS Safety Report 4467816-7 (Version None)
Quarter: 2004Q4

REPORT INFORMATION
  Report Type: 
  Country: None (occurrence: None)
  Receive Date: 20041004
  Receipt Date: 20040927
  Transmission Date: 20050328
  Serious: Yes (Hospitalization, Other)
  Sender: FDA-Public Use
  Company Number: 2003-12-0666

PATIENT
  Age: 54 Year
  Sex: Male
  Weight: 69 kg

DRUGS (5)
  1. INTRON A [Suspect]
     Indication: HEPATITIS C
     Dosage: 6 MU QD TIW INTRAMUSCULAR
     Route: 030
     Dates: start: 20030328, end: 20030914
  2. REBETOL [Suspect]
     Indication: HEPATITIS C
     Dosage: 800-400 MG ORAL
     Route: 048
     Dates: start: 20030328, end: 20030914
  3. NORVASC [Concomitant]
  4. IMIDAPRIL HCL TABLETS [Concomitant]
  5. GASTER TABLETS [Concomitant]

REACTIONS (4)
  - ANOREXIA [None]
  - DRUG EFFECT DECREASED [None]
  - INTRACRANIAL HYPOTENSION [None]
  - NAUSEA [None]
